FAERS Safety Report 15769168 (Version 1)
Quarter: 2018Q4

REPORT INFORMATION
  Report Type: Spontaneous
  Country: CA (occurrence: CA)
  Receive Date: 20181228
  Receipt Date: 20181228
  Transmission Date: 20190205
  Serious: Yes (Other)
  Sender: FDA-Public Use
  Company Number: CA-ROCHE-2236031

PATIENT
  Age: 53 Year
  Sex: Female

DRUGS (8)
  1. ALTACE [Concomitant]
     Active Substance: RAMIPRIL
     Indication: BLOOD PRESSURE MEASUREMENT
     Dosage: 1 DF, QD
     Route: 048
     Dates: start: 2013
  2. HYDROCHLOROTHIAZIDE. [Concomitant]
     Active Substance: HYDROCHLOROTHIAZIDE
     Indication: BLOOD PRESSURE ABNORMAL
     Dosage: 1 DF, QD
     Route: 048
     Dates: start: 2012
  3. XOLAIR [Suspect]
     Active Substance: OMALIZUMAB
     Route: 058
     Dates: start: 20181011
  4. REACTINE (CANADA) [Concomitant]
     Active Substance: CETIRIZINE HYDROCHLORIDE
     Indication: PRODUCT USED FOR UNKNOWN INDICATION
     Dosage: 2 DF, QD
     Route: 048
     Dates: start: 20180719
  5. CYMBALTA [Concomitant]
     Active Substance: DULOXETINE HYDROCHLORIDE
     Indication: DEPRESSION
     Dosage: 1 DF, QD
     Route: 048
     Dates: start: 2015
  6. XOLAIR [Suspect]
     Active Substance: OMALIZUMAB
     Indication: CHRONIC SPONTANEOUS URTICARIA
     Route: 058
     Dates: start: 20180911
  7. MONTELUKAST SODIUM. [Suspect]
     Active Substance: MONTELUKAST SODIUM
     Indication: CHRONIC SPONTANEOUS URTICARIA
     Dosage: 1 DF, QD
     Route: 048
     Dates: start: 20180808
  8. GABAPENTIN. [Concomitant]
     Active Substance: GABAPENTIN
     Indication: PAIN
     Dosage: 3 DF, QD
     Route: 048
     Dates: start: 2013

REACTIONS (13)
  - Blood pressure systolic increased [Unknown]
  - Speech disorder [Not Recovered/Not Resolved]
  - Decreased appetite [Unknown]
  - Headache [Unknown]
  - Cough [Not Recovered/Not Resolved]
  - Asthma [Unknown]
  - Arthralgia [Unknown]
  - Swelling face [Recovering/Resolving]
  - Malaise [Unknown]
  - Lower respiratory tract infection [Unknown]
  - Contusion [Unknown]
  - Sensitivity to weather change [Unknown]
  - Pain in jaw [Recovering/Resolving]

NARRATIVE: CASE EVENT DATE: 20180911
